FAERS Safety Report 10089126 (Version 6)
Quarter: 2014Q2

REPORT INFORMATION
  Report Type: Report from Study
  Country: NL (occurrence: NL)
  Receive Date: 20140421
  Receipt Date: 20140627
  Transmission Date: 20141212
  Serious: Yes (Death, Life-Threatening, Hospitalization, Other)
  Sender: FDA-Public Use
  Company Number: NL-MPIJNJ-2014JNJ001996

PATIENT
  Sex: 0

DRUGS (7)
  1. VELCADE [Suspect]
     Indication: PLASMA CELL MYELOMA
     Dosage: 2.8 MG, UNK
     Route: 065
     Dates: start: 20111202, end: 20111209
  2. VELCADE [Suspect]
     Dosage: 2.3 MG, UNK
     Route: 065
     Dates: start: 20111230, end: 20120504
  3. VELCADE [Suspect]
     Dosage: 1.2 MG, UNK
     Route: 065
     Dates: start: 20120601, end: 20120629
  4. VELCADE [Suspect]
     Dosage: 20 MG, UNK
     Route: 065
     Dates: start: 20111202, end: 20120705
  5. REVLIMID [Suspect]
     Indication: PLASMA CELL MYELOMA
     Dosage: 10 MG, UNK
     Route: 048
     Dates: start: 20111202, end: 20120705
  6. REVLIMID [Suspect]
     Dosage: 5 MG, UNK
     Route: 048
     Dates: start: 20120713, end: 20140210
  7. DEXAMETHASONE [Suspect]
     Indication: PLASMA CELL MYELOMA
     Dosage: 20 MG, UNK
     Route: 048
     Dates: start: 20111202, end: 20120705

REACTIONS (2)
  - Pneumonia [Fatal]
  - Acute myeloid leukaemia [Not Recovered/Not Resolved]
